FAERS Safety Report 11106384 (Version 1)
Quarter: 2015Q2

REPORT INFORMATION
  Report Type: Spontaneous
  Country: US (occurrence: None)
  Receive Date: 20150511
  Receipt Date: 20150511
  Transmission Date: 20150821
  Serious: Yes (Hospitalization)
  Sender: FDA-Public Use
  Company Number: None

PATIENT
  Age: 78 Year
  Sex: Male
  Weight: 70.6 kg

DRUGS (2)
  1. BENDAMUSTINE HYDROCHLORIDE [Suspect]
     Active Substance: BENDAMUSTINE HYDROCHLORIDE
     Dates: end: 20150321
  2. RITUXIMAB (MOAB C2B8 ANTI CD20, CHIMERIC) [Suspect]
     Active Substance: RITUXIMAB
     Dates: end: 20150319

REACTIONS (11)
  - Pyrexia [None]
  - Chills [None]
  - Cough [None]
  - Febrile neutropenia [None]
  - Neutrophil count decreased [None]
  - Pneumonia parainfluenzae viral [None]
  - Dyspepsia [None]
  - Platelet count decreased [None]
  - Haemoglobin decreased [None]
  - Pneumonia [None]
  - Gastrooesophageal reflux disease [None]

NARRATIVE: CASE EVENT DATE: 20150406
